FAERS Safety Report 6696789-1 (Version None)
Quarter: 2010Q2

REPORT INFORMATION
  Report Type: 
  Country: None (occurrence: None)
  Receive Date: 20100421
  Receipt Date: 20100115
  Transmission Date: 20101027
  Serious: No
  Sender: FDA-Public Use
  Company Number: US-000003

PATIENT
  Sex: Female
  Weight: 61.2356 kg

DRUGS (4)
  1. KUVAN [Suspect]
     Indication: METABOLIC DISORDER
     Dosage: 300 MG BID ORAL, 300 MG QD ORAL
     Route: 048
     Dates: start: 20091201, end: 20100101
  2. KUVAN [Suspect]
     Indication: METABOLIC DISORDER
     Dosage: 300 MG BID ORAL, 300 MG QD ORAL
     Route: 048
     Dates: start: 20091118
  3. SINEMET [Concomitant]
  4. IMMUNE GLOBULIN NOS [Concomitant]

REACTIONS (1)
  - ARTHRALGIA [None]
